FAERS Safety Report 5724280-5 (Version None)
Quarter: 2008Q2

REPORT INFORMATION
  Report Type: 
  Country: None (occurrence: None)
  Receive Date: 20080428
  Receipt Date: 20080410
  Transmission Date: 20081010
  Serious: Yes (Other)
  Sender: FDA-Public Use
  Company Number: A-CH2007-18674

PATIENT

DRUGS (1)
  1. TRACLEER [Suspect]

REACTIONS (1)
  - DRUG EXPOSURE DURING PREGNANCY [None]
